FAERS Safety Report 8792881 (Version 1)
Quarter: 2012Q4

REPORT INFORMATION
  Report Type: 
  Country: GB (occurrence: GB)
  Receive Date: 20120918
  Receipt Date: 20120918
  Transmission Date: 20130627
  Serious: Yes (Hospitalization)
  Sender: FDA-Public Use
  Company Number: GB-PFIZER INC-2012228198

PATIENT
  Age: 38 Year
  Sex: Female
  Weight: 62.4 kg

DRUGS (3)
  1. GENOTROPIN [Suspect]
     Indication: GROWTH HORMONE DEFICIENCY
     Dosage: 0.2 mg, 1x/day ( 7/wk)
     Route: 058
     Dates: start: 20031001
  2. THYROXINE [Concomitant]
     Indication: BLOOD THYROID STIMULATING HORMONE DECREASED
     Dosage: UNK
     Dates: start: 20070201
  3. THYROXINE [Concomitant]
     Indication: PRIMARY HYPOTHYROIDISM

REACTIONS (3)
  - Headache [Recovered/Resolved with Sequelae]
  - Nausea [Recovered/Resolved with Sequelae]
  - Vomiting [Recovered/Resolved with Sequelae]
